FAERS Safety Report 5569983-0 (Version None)
Quarter: 2007Q4

REPORT INFORMATION
  Report Type: 
  Country: None (occurrence: None)
  Receive Date: 20071217
  Receipt Date: 20071204
  Transmission Date: 20080405
  Serious: Yes (Hospitalization)
  Sender: FDA-Public Use
  Company Number: GXKR2007GB10416

PATIENT
  Age: 81 Year
  Sex: Male

DRUGS (6)
  1. ENALAPRIL MALEATE [Suspect]
     Dosage: 30 MG , ORAL
     Route: 048
     Dates: end: 20071122
  2. METFORMIN (NGX)(METFORMIN) UNKNOWN [Suspect]
     Dosage: 1 G, ORAL
     Route: 048
     Dates: end: 20071122
  3. CARVEDILOL [Concomitant]
  4. FUROSEMIDE [Concomitant]
  5. NICORANDIL (NICORANDIL) [Concomitant]
  6. WARFARIN SODIUM [Concomitant]

REACTIONS (1)
  - RENAL FAILURE ACUTE [None]
